FAERS Safety Report 24404703 (Version 1)
Quarter: 2024Q4

REPORT INFORMATION
  Report Type: Report from Study
  Country: US (occurrence: US)
  Receive Date: 20241007
  Receipt Date: 20241007
  Transmission Date: 20250115
  Serious: No
  Sender: ROCHE
  Company Number: US-ROCHE-3520759

PATIENT
  Age: 63 Year
  Sex: Female

DRUGS (3)
  1. GAZYVA [Suspect]
     Active Substance: OBINUTUZUMAB
     Indication: Non-Hodgkin^s lymphoma
     Dosage: MOST RECENT DOSE RECEIVED ON 21/FEB/2024 (DAY 1 CYCLE 1 100 MG), 22/FEB/2024 (DAY 2 CYCLE 1 900 MG).
     Route: 042
     Dates: start: 20240212
  2. GAZYVA [Suspect]
     Active Substance: OBINUTUZUMAB
     Indication: Chronic lymphocytic leukaemia
  3. VENETOCLAX [Concomitant]
     Active Substance: VENETOCLAX

REACTIONS (2)
  - Drug hypersensitivity [Unknown]
  - Off label use [Unknown]

NARRATIVE: CASE EVENT DATE: 20240212
